FAERS Safety Report 13952804 (Version 1)
Quarter: 2017Q3

REPORT INFORMATION
  Report Type: Spontaneous
  Country: US (occurrence: US)
  Receive Date: 20170911
  Receipt Date: 20170911
  Transmission Date: 20171128
  Serious: Yes (Other)
  Sender: FDA-Public Use
  Company Number: US-TEVA-786964USA

PATIENT

DRUGS (1)
  1. FENTANYL. [Suspect]
     Active Substance: FENTANYL
     Indication: NEOPLASM MALIGNANT
     Route: 062

REACTIONS (3)
  - Drug abuse [Unknown]
  - Overdose [Unknown]
  - Incorrect dose administered [Unknown]
